FAERS Safety Report 24464452 (Version 1)
Quarter: 2024Q4

REPORT INFORMATION
  Report Type: Report from Study
  Country: US (occurrence: US)
  Receive Date: 20241018
  Receipt Date: 20241018
  Transmission Date: 20250114
  Serious: No
  Sender: ROCHE
  Company Number: US-ROCHE-3476415

PATIENT
  Age: 36 Year
  Sex: Female
  Weight: 190.0 kg

DRUGS (9)
  1. XOLAIR [Suspect]
     Active Substance: OMALIZUMAB
     Indication: Asthma
     Dosage: STRENGTH: 150 MG, 75 MG PFS. INJECT 3 PFS SUBCUTANEOUSLY EVERY 2 WEEKS
     Route: 058
     Dates: start: 202010
  2. XOLAIR [Suspect]
     Active Substance: OMALIZUMAB
     Indication: Asthma
  3. BREO ELLIPTA [Concomitant]
     Active Substance: FLUTICASONE FUROATE\VILANTEROL TRIFENATATE
     Dosage: 100-25 MCG/DOSE
  4. ALBUTEROL SULFATE [Concomitant]
     Active Substance: ALBUTEROL SULFATE
     Dosage: 2.5 MG/3ML?1 VIAL VIA NEB EVERY 4-6 HRS AS NEEDED
  5. SINGULAIR [Concomitant]
     Active Substance: MONTELUKAST SODIUM
  6. XHANCE [Concomitant]
     Active Substance: FLUTICASONE PROPIONATE
     Dosage: 93 MCG
     Route: 045
  7. TRIAMCINOLONE [Concomitant]
     Active Substance: TRIAMCINOLONE
  8. AUVI-Q [Concomitant]
     Active Substance: EPINEPHRINE
     Dosage: MG/0.3 ML
  9. ALCLOMETASONE DIPROPIONATE [Concomitant]
     Active Substance: ALCLOMETASONE DIPROPIONATE

REACTIONS (15)
  - Urticaria [Not Recovered/Not Resolved]
  - Mouth breathing [Unknown]
  - Oropharyngeal pain [Unknown]
  - Dermatitis [Unknown]
  - Respiratory disorder [Unknown]
  - Weight decreased [Unknown]
  - Dry mouth [Unknown]
  - Dry eye [Unknown]
  - Rash [Unknown]
  - Dyspepsia [Unknown]
  - Urticaria [Unknown]
  - Rhinitis allergic [Unknown]
  - Upper respiratory tract infection [Unknown]
  - Acute sinusitis [Unknown]
  - Off label use [Unknown]

NARRATIVE: CASE EVENT DATE: 20231204
